FAERS Safety Report 23162052 (Version 2)
Quarter: 2024Q2

REPORT INFORMATION
  Report Type: Spontaneous
  Country: IT (occurrence: IT)
  Receive Date: 20231109
  Receipt Date: 20240402
  Transmission Date: 20240716
  Serious: Yes (Other)
  Sender: FDA-Public Use
  Company Number: None

PATIENT
  Age: 83 Year
  Sex: Male

DRUGS (8)
  1. ELIQUIS [Suspect]
     Active Substance: APIXABAN
     Indication: Atrial fibrillation
     Dosage: ELIQUIS*60CPR RIV 5MG - DOSAGE SCHEDULE: 2 CPR PER DAY REDUCED DOSAGE ON 28/09/2022.
     Route: 048
     Dates: start: 20210613, end: 202209
  2. BUDESONIDE [Concomitant]
     Active Substance: BUDESONIDE
     Indication: Chronic obstructive pulmonary disease
     Dosage: MIFLLONIDE BREEZ: 60CPS 200MCG - 1 CP/DAY
     Route: 055
     Dates: start: 2022
  3. LASIX [Concomitant]
     Active Substance: FUROSEMIDE
     Indication: Hypertensive heart disease
     Dosage: LASIX: 30CPR 25MG - 1 CP/DAY
     Route: 048
     Dates: start: 2022
  4. DAPAGLIFLOZIN [Concomitant]
     Active Substance: DAPAGLIFLOZIN
     Indication: Diabetes mellitus
     Dosage: FORXIGA: 28CPR RIV 10MG - 1 CP/DAY
     Route: 048
     Dates: start: 2022
  5. BISOPROLOL FUMARATE [Concomitant]
     Active Substance: BISOPROLOL FUMARATE
     Indication: Hypertensive heart disease
     Dosage: BISOPROLOL SAN: 28CPR RIV - 1 CP/DAY
     Route: 048
     Dates: start: 2022
  6. TAMSULOSIN HYDROCHLORIDE [Concomitant]
     Active Substance: TAMSULOSIN HYDROCHLORIDE
     Indication: Benign prostatic hyperplasia
     Dosage: OMNIC: 20CPS 0.4MG RM - 1 CP/DAY
     Route: 048
     Dates: start: 2022
  7. PROTEC [OMEPRAZOLE] [Concomitant]
     Indication: Gastrooesophageal reflux disease
     Dosage: PROTEC:14CPS 20MG -1 CP/DAY
     Route: 048
     Dates: start: 2022
  8. FEBUXOSTAT [Concomitant]
     Active Substance: FEBUXOSTAT
     Indication: Hyperuricaemia
     Dosage: ADENURIC: 28CPR RIV 80MG -1 CP/DAY
     Route: 048
     Dates: start: 2022

REACTIONS (3)
  - Blood creatinine increased [Recovering/Resolving]
  - Renal failure [Recovering/Resolving]
  - Glomerular filtration rate decreased [Recovering/Resolving]

NARRATIVE: CASE EVENT DATE: 20220901
